FAERS Safety Report 9682847 (Version 2)
Quarter: 2014Q1

REPORT INFORMATION
  Report Type: Report from Study
  Country: CL (occurrence: CL)
  Receive Date: 20131112
  Receipt Date: 20140120
  Transmission Date: 20141002
  Serious: Yes (Death, Other)
  Sender: FDA-Public Use
  Company Number: PHHY2013CL128312

PATIENT
  Age: 92 Year
  Sex: Female

DRUGS (3)
  1. EXELON [Suspect]
     Dosage: UNK UKN, UNK
     Route: 048
     Dates: end: 2000
  2. EXELON PATCH [Suspect]
     Dosage: UNK UKN, DAILY
     Route: 062
     Dates: start: 2000, end: 20130724
  3. RAMIPRES [Concomitant]
     Indication: HYPERTENSION
     Dosage: UNK UKN, UNK

REACTIONS (3)
  - Cardio-respiratory arrest [Fatal]
  - Cardiac failure [Unknown]
  - Fall [Unknown]
